FAERS Safety Report 10510678 (Version 1)
Quarter: 2014Q4

REPORT INFORMATION
  Report Type: Report from Study
  Country: US (occurrence: US)
  Receive Date: 20141010
  Receipt Date: 20141010
  Transmission Date: 20150528
  Serious: Yes (Hospitalization)
  Sender: FDA-Public Use
  Company Number: US-ASTRAZENECA-2014SE74250

PATIENT
  Age: 70 Year
  Sex: Male

DRUGS (10)
  1. ZOLADEX [Suspect]
     Active Substance: GOSERELIN ACETATE
     Indication: PROSTATE CANCER
     Route: 058
     Dates: start: 20140815
  2. COSUDEX [Suspect]
     Active Substance: BICALUTAMIDE
     Indication: PROSTATE CANCER
     Route: 048
     Dates: start: 20140730
  3. ZOFRAN [Concomitant]
     Active Substance: ONDANSETRON HYDROCHLORIDE
  4. SOMAC [Concomitant]
     Active Substance: PANTOPRAZOLE SODIUM
  5. MAXOLON [Concomitant]
     Active Substance: METOCLOPRAMIDE HYDROCHLORIDE
  6. DOCETAXEL. [Suspect]
     Active Substance: DOCETAXEL
     Indication: PROSTATE CANCER
     Route: 042
     Dates: start: 20140915
  7. RADIOTHERAPY [Suspect]
     Active Substance: RADIATION THERAPY
     Indication: PROSTATE CANCER
     Route: 065
  8. CRESTOR [Concomitant]
     Active Substance: ROSUVASTATIN CALCIUM
  9. ZOLADEX [Suspect]
     Active Substance: GOSERELIN ACETATE
     Indication: PROSTATE CANCER
     Route: 058
     Dates: start: 20140915
  10. EXFORGE [Concomitant]
     Active Substance: AMLODIPINE BESYLATE\VALSARTAN

REACTIONS (5)
  - Weight decreased [Unknown]
  - Vomiting [Unknown]
  - Fatigue [Unknown]
  - Nausea [Recovering/Resolving]
  - Abdominal pain [Unknown]

NARRATIVE: CASE EVENT DATE: 20140923
